FAERS Safety Report 9053948 (Version 1)
Quarter: 2013Q1

REPORT INFORMATION
  Report Type: Spontaneous
  Country: US (occurrence: None)
  Receive Date: 20130201
  Receipt Date: 20130201
  Transmission Date: 20140127
  Serious: Yes (Disabling)
  Sender: FDA-Public Use
  Company Number: None

PATIENT
  Sex: Male
  Weight: 93.44 kg

DRUGS (1)
  1. AMBIEN/ZOLPIDEM 10 MG VARIOUS/SANOFI [Suspect]
     Indication: INSOMNIA
     Route: 048
     Dates: start: 2002, end: 2012

REACTIONS (2)
  - Back pain [None]
  - No therapeutic response [None]
